FAERS Safety Report 10476077 (Version 2)
Quarter: 2014Q4

REPORT INFORMATION
  Report Type: Report from Study
  Country: US (occurrence: US)
  Receive Date: 20140925
  Receipt Date: 20141027
  Transmission Date: 20150528
  Serious: Yes (Hospitalization)
  Sender: FDA-Public Use
  Company Number: US-TAKEDA-2014MPI002496

PATIENT
  Age: 59 Year
  Sex: Male
  Weight: 78.9 kg

DRUGS (1)
  1. VELCADE [Suspect]
     Active Substance: BORTEZOMIB
     Indication: PLASMA CELL MYELOMA
     Dosage: 1.3 MG/M2, WEEKLY X 4 WEEKS ON 4 WEEKS OFF
     Route: 058
     Dates: start: 20140103

REACTIONS (1)
  - Fracture nonunion [Recovered/Resolved]

NARRATIVE: CASE EVENT DATE: 20140509
